FAERS Safety Report 5669947-2 (Version None)
Quarter: 2008Q1

REPORT INFORMATION
  Report Type: 
  Country: None (occurrence: None)
  Receive Date: 20080317
  Receipt Date: 20080304
  Transmission Date: 20080703
  Serious: Yes (Hospitalization, Other)
  Sender: FDA-Public Use
  Company Number: CA-GENENTECH-248857

PATIENT
  Sex: Female

DRUGS (1)
  1. EFALIZUMAB [Suspect]
     Indication: PSORIASIS
     Dosage: 0.8 ML, 1/WEEK
     Route: 058
     Dates: start: 20060727, end: 20070801

REACTIONS (3)
  - HERPES ZOSTER [None]
  - LYMPHADENOPATHY [None]
  - PSEUDOLYMPHOMA [None]
